FAERS Safety Report 7273213-1 (Version None)
Quarter: 2010Q4

REPORT INFORMATION
  Report Type: 
  Country: None (occurrence: None)
  Receive Date: 20101201
  Receipt Date: 20100812
  Transmission Date: 20110411
  Serious: Yes (Other)
  Sender: FDA-Public Use
  Company Number: 308249

PATIENT
  Age: 75 Year
  Sex: Female
  Weight: 90.7 kg

DRUGS (19)
  1. NOVOLOG [Suspect]
     Indication: TYPE 2 DIABETES MELLITUS
     Dosage: 6 IU, TID SLIDING SCALE BEFORE MEALS, SUBCUTANEOUS. 6 IU, SINGLE, SUBCUTANEOUS
     Route: 058
     Dates: start: 20100419, end: 20100419
  2. NOVOLOG [Suspect]
     Indication: TYPE 2 DIABETES MELLITUS
     Dosage: 6 IU, TID SLIDING SCALE BEFORE MEALS, SUBCUTANEOUS. 6 IU, SINGLE, SUBCUTANEOUS
     Route: 058
     Dates: start: 20090810
  3. NOVOLOG [Suspect]
  4. LEVEMIR [Concomitant]
  5. METFORMIN HCL (METFORMIN HYDROCHLORIDE) [Concomitant]
  6. HUMALOG /00030501/ (INSULIN) [Concomitant]
  7. LISINOPRIL /00894002/ (LISINOPRIL DIHYDRATE) [Concomitant]
  8. LEVOTHYROXINE /00068002/ (LEVOTHYROXINE SODIUM) [Concomitant]
  9. ATENOLOL [Concomitant]
  10. SIMVASTATIN [Concomitant]
  11. MELOXICAM [Concomitant]
  12. MULTIVITAMIN /00097801/ (ASCORBIC ACID, CALCIUM PANTOTHENATE, ERGOCALC [Concomitant]
  13. FLURAZEPAM /00246102/ (FLURAZEPAM HYDROCHLORIDE) [Concomitant]
  14. IBUPROFEN /00109205/ (IBUPROFEN SODIUM) [Concomitant]
  15. ASPIRIN CHILDREN (ACETYLSALICYLIC ACID) [Concomitant]
  16. CALCIUM +D (CALCIUM, ERGOCALCIFEROL) [Concomitant]
  17. CENTRUM SILVER /01292501/ (ASCORBIC ACID, CALCIUM, MINERALS NOS, RETIN [Concomitant]
  18. FISH OIL (FISH OIL) [Concomitant]
  19. FOSINOPRIL SODIUM [Concomitant]

REACTIONS (1)
  - HYPERSENSITIVITY [None]
